FAERS Safety Report 22661045 (Version 1)
Quarter: 2023Q2

REPORT INFORMATION
  Report Type: Spontaneous
  Country: CN (occurrence: None)
  Receive Date: 20230630
  Receipt Date: 20230630
  Transmission Date: 20230721
  Serious: Yes (Other)
  Sender: FDA-Public Use
  Company Number: 2023A147423

PATIENT
  Age: 67 Year
  Sex: Female
  Weight: 57 kg

DRUGS (4)
  1. OSIMERTINIB MESYLATE [Suspect]
     Active Substance: OSIMERTINIB MESYLATE
     Indication: Neoplasm malignant
     Route: 048
     Dates: start: 20220715, end: 20230621
  2. GLUCUROLACTONE [Concomitant]
     Active Substance: GLUCUROLACTONE
  3. PHOSPHOLIPID [Concomitant]
     Active Substance: PHOSPHOLIPID
  4. GLYCYRRHIZIN [Concomitant]
     Active Substance: GLYCYRRHIZIN

REACTIONS (1)
  - Hepatic function abnormal [Recovering/Resolving]

NARRATIVE: CASE EVENT DATE: 20221213
